FAERS Safety Report 7824862-0 (Version None)
Quarter: 2011Q4

REPORT INFORMATION
  Report Type: 
  Country: None (occurrence: None)
  Receive Date: 20111019
  Receipt Date: 20110401
  Transmission Date: 20120403
  Serious: No
  Sender: FDA-Public Use
  Company Number: US-BRISTOL-MYERS SQUIBB COMPANY-15552359

PATIENT
  Age: 56 Year
  Sex: Male

DRUGS (2)
  1. PROCARDIA [Suspect]
     Dosage: INCREASED TO 90MG IN NOV 2010
  2. AVALIDE [Suspect]
     Dosage: 1DF:300/25MG, BOTTLE 90, US 2788-32

REACTIONS (1)
  - BLOOD PRESSURE INADEQUATELY CONTROLLED [None]
